FAERS Safety Report 20806086 (Version 1)
Quarter: 2022Q2

REPORT INFORMATION
  Report Type: Spontaneous
  Country: US (occurrence: US)
  Receive Date: 20220510
  Receipt Date: 20220510
  Transmission Date: 20220721
  Serious: No
  Sender: FDA-Public Use
  Company Number: US-ALLERGAN-2213825US

PATIENT

DRUGS (1)
  1. VUITY [Suspect]
     Active Substance: PILOCARPINE HYDROCHLORIDE
     Indication: Product used for unknown indication
     Dosage: UNK
     Dates: start: 20220422, end: 20220422

REACTIONS (4)
  - Ocular discomfort [Unknown]
  - Visual impairment [Unknown]
  - Ocular hyperaemia [Unknown]
  - Headache [Unknown]

NARRATIVE: CASE EVENT DATE: 20220422
